FAERS Safety Report 21845326 (Version 1)
Quarter: 2023Q1

REPORT INFORMATION
  Report Type: Spontaneous
  Country: US (occurrence: US)
  Receive Date: 20230111
  Receipt Date: 20230111
  Transmission Date: 20230418
  Serious: No
  Sender: FDA-Public Use
  Company Number: US-JNJFOC-20230117921

PATIENT
  Sex: Male

DRUGS (2)
  1. MOTRIN [Interacting]
     Active Substance: IBUPROFEN
     Indication: Product used for unknown indication
     Route: 065
  2. IMBRUVICA [Suspect]
     Active Substance: IBRUTINIB
     Indication: Non-Hodgkin^s lymphoma
     Route: 048

REACTIONS (1)
  - Drug interaction [Unknown]
